FAERS Safety Report 8340894-0 (Version None)
Quarter: 2012Q2

REPORT INFORMATION
  Report Type: 
  Country: None (occurrence: None)
  Receive Date: 20120507
  Receipt Date: 20120425
  Transmission Date: 20120825
  Serious: Yes (Other)
  Sender: FDA-Public Use
  Company Number: US-ROCHE-1059623

PATIENT
  Sex: Female

DRUGS (1)
  1. BONIVA [Suspect]
     Indication: PRODUCT USED FOR UNKNOWN INDICATION
     Dosage: LAST DOSE OF IBANDRONIC ACID WAS TAKEN ON 29/JUN/2010
     Route: 065
     Dates: end: 20100629

REACTIONS (5)
  - BONE PAIN [None]
  - NEURALGIA [None]
  - SURGERY [None]
  - OSTEOMYELITIS [None]
  - PAIN [None]
